FAERS Safety Report 21701599 (Version 1)
Quarter: 2022Q4

REPORT INFORMATION
  Report Type: Spontaneous
  Country: US (occurrence: None)
  Receive Date: 20221208
  Receipt Date: 20221208
  Transmission Date: 20230112
  Serious: Yes (Hospitalization, Other)
  Sender: FDA-Public Use
  Company Number: US-Unichem Pharmaceuticals (USA) Inc-UCM202212-001271

PATIENT
  Age: 57 Year
  Sex: Female

DRUGS (1)
  1. BACLOFEN [Suspect]
     Active Substance: BACLOFEN
     Indication: Muscle spasms
     Dosage: UNKNOWN

REACTIONS (9)
  - Unresponsive to stimuli [Recovering/Resolving]
  - Anuria [Recovering/Resolving]
  - Shock [Recovering/Resolving]
  - Lethargy [Recovering/Resolving]
  - Mental status changes [Recovering/Resolving]
  - Respiratory failure [Recovering/Resolving]
  - Seizure [Recovering/Resolving]
  - Toxicity to various agents [Unknown]
  - Product use in unapproved indication [Unknown]
